FAERS Safety Report 22056050 (Version 1)
Quarter: 2023Q1

REPORT INFORMATION
  Report Type: Spontaneous
  Country: CA (occurrence: CA)
  Receive Date: 20230302
  Receipt Date: 20230302
  Transmission Date: 20230418
  Serious: Yes (Hospitalization, Other)
  Sender: FDA-Public Use
  Company Number: CA-PFIZER INC-202300087232

PATIENT
  Age: 79 Year
  Sex: Female
  Weight: 74 kg

DRUGS (15)
  1. SPIRONOLACTONE [Suspect]
     Active Substance: SPIRONOLACTONE
     Indication: Pulmonary oedema
     Dosage: 25 MG, 2X/DAY
     Route: 048
  2. FUROSEMIDE [Suspect]
     Active Substance: FUROSEMIDE
     Indication: Pulmonary oedema
     Dosage: 80 MG, 2X/DAY
     Route: 048
  3. ACETAMINOPHEN [Concomitant]
     Active Substance: ACETAMINOPHEN
  4. AMLODIPINE [Concomitant]
     Active Substance: AMLODIPINE BESYLATE
  5. CHOLECALCIFEROL [Concomitant]
     Active Substance: CHOLECALCIFEROL
  6. DIMENHYDRINATE [Concomitant]
     Active Substance: DIMENHYDRINATE
  7. ELIQUIS [Concomitant]
     Active Substance: APIXABAN
  8. EZETIMIBE [Concomitant]
     Active Substance: EZETIMIBE
  9. JANUVIA [Concomitant]
     Active Substance: SITAGLIPTIN PHOSPHATE
  10. JARDIANCE [Concomitant]
     Active Substance: EMPAGLIFLOZIN
  11. LOPERAMIDE [Concomitant]
     Active Substance: LOPERAMIDE
  12. MELATONIN [Concomitant]
     Active Substance: MELATONIN
  13. METOPROLOL [Concomitant]
     Active Substance: METOPROLOL
     Route: 065
  14. PRAMIPEXOLE [Concomitant]
     Active Substance: PRAMIPEXOLE
  15. ZOPICLONE [Concomitant]
     Active Substance: ZOPICLONE

REACTIONS (2)
  - Acute kidney injury [Recovering/Resolving]
  - Polyuria [Recovering/Resolving]
